FAERS Safety Report 7263249-9 (Version None)
Quarter: 2011Q1

REPORT INFORMATION
  Report Type: 
  Country: None (occurrence: None)
  Receive Date: 20110130
  Receipt Date: 20101101
  Transmission Date: 20110831
  Serious: No
  Sender: FDA-Public Use
  Company Number: US-ABBOTT-10P-163-0678571-00

PATIENT
  Age: 29 Year
  Sex: Female

DRUGS (4)
  1. RHINOCORT [Concomitant]
     Indication: PRODUCT USED FOR UNKNOWN INDICATION
     Dosage: 1 SPRAY EACH NOSTRIL EVERY DAY
  2. ZOLOFT [Concomitant]
     Indication: PRODUCT USED FOR UNKNOWN INDICATION
     Dosage: 100 MG QD
  3. HUMIRA [Suspect]
     Indication: PSORIASIS
     Dates: start: 20100501
  4. NUVARING [Concomitant]
     Indication: CONTRACEPTION

REACTIONS (4)
  - DEVICE MALFUNCTION [None]
  - INFLUENZA LIKE ILLNESS [None]
  - INJECTION SITE PAIN [None]
  - FEELING ABNORMAL [None]
